FAERS Safety Report 8378962-X (Version None)
Quarter: 2012Q2

REPORT INFORMATION
  Report Type: 
  Country: None (occurrence: None)
  Receive Date: 20120523
  Receipt Date: 20120521
  Transmission Date: 20120825
  Serious: No
  Sender: FDA-Public Use
  Company Number: US-PFIZER INC-2012122886

PATIENT
  Sex: Male
  Weight: 99.773 kg

DRUGS (2)
  1. VIAGRA [Suspect]
     Indication: ERECTILE DYSFUNCTION
     Dosage: 50 MG, AS NEEDED
     Route: 048
     Dates: start: 20100501
  2. SPIRONOLACTONE [Concomitant]
     Indication: JOINT EFFUSION
     Dosage: UNK

REACTIONS (1)
  - DRUG INEFFECTIVE [None]
